FAERS Safety Report 12686213 (Version 1)
Quarter: 2016Q3

REPORT INFORMATION
  Report Type: Spontaneous
  Country: US (occurrence: US)
  Receive Date: 20160825
  Receipt Date: 20160825
  Transmission Date: 20161109
  Serious: No
  Sender: FDA-Public Use
  Company Number: US-JAZZ-2016-US-006849

PATIENT
  Age: 70 Year
  Sex: Male

DRUGS (9)
  1. XYREM [Suspect]
     Active Substance: SODIUM OXYBATE
     Indication: SOMNOLENCE
     Dosage: 2.25 G, BID
     Route: 048
     Dates: start: 200712, end: 200712
  2. LORAZEPAM. [Suspect]
     Active Substance: LORAZEPAM
     Indication: HYPERTONIC BLADDER
     Dosage: UNK
     Dates: start: 20160201
  3. SEROQUEL [Concomitant]
     Active Substance: QUETIAPINE FUMARATE
  4. XYREM [Suspect]
     Active Substance: SODIUM OXYBATE
     Dosage: 4.5 G, BID
     Route: 048
     Dates: start: 200712
  5. LORAZEPAM. [Suspect]
     Active Substance: LORAZEPAM
     Indication: ANXIETY
  6. LUNESTA [Concomitant]
     Active Substance: ESZOPICLONE
  7. DESMOPRESSIN ACETATE. [Concomitant]
     Active Substance: DESMOPRESSIN ACETATE
  8. ASPIRIN. [Concomitant]
     Active Substance: ASPIRIN
  9. SANCTURA [Concomitant]
     Active Substance: TROSPIUM CHLORIDE

REACTIONS (4)
  - Hypertonic bladder [Unknown]
  - Cognitive disorder [Unknown]
  - Anxiety [Unknown]
  - Nasopharyngitis [Recovered/Resolved]

NARRATIVE: CASE EVENT DATE: 201603
